FAERS Safety Report 7689509-5 (Version None)
Quarter: 2011Q3

REPORT INFORMATION
  Report Type: 
  Country: None (occurrence: None)
  Receive Date: 20110817
  Receipt Date: 20110718
  Transmission Date: 20111222
  Serious: No
  Sender: FDA-Public Use
  Company Number: US-TYCO HEALTHCARE/MALLINCKRODT-T201101431

PATIENT
  Sex: Female
  Weight: 108.84 kg

DRUGS (13)
  1. FLECTOR                            /00372302/ [Concomitant]
     Indication: PAIN
     Dosage: UNK
  2. SAVELLA [Concomitant]
     Indication: NEUROPATHY PERIPHERAL
     Dosage: 100 MG, BID
  3. FENTANYL-100 [Suspect]
     Indication: PAIN
     Dosage: 50 UG/HR, EVERY 72 HOURS
     Route: 062
     Dates: start: 20110710
  4. FENTANYL [Concomitant]
     Dosage: 50 UG/HR, EVERY 72 HOURS
     Dates: start: 20110609, end: 20110701
  5. PROAIR HFA [Concomitant]
     Indication: ASTHMA
  6. ADVAIR DISKUS 100/50 [Concomitant]
     Indication: ASTHMA
  7. CYMBALTA [Concomitant]
     Indication: NEUROPATHY PERIPHERAL
     Dosage: 90 MG, QD
  8. VITAMINS                           /90003601/ [Concomitant]
  9. LEVOTHYROXINE SODIUM [Concomitant]
     Indication: HYPOTHYROIDISM
     Dosage: 25 MCG, QD
  10. OXYCODONE HCL [Concomitant]
     Indication: PAIN
     Dosage: 15 MG TABS, 1-2 TABLETS Q 4-6 HOURS
  11. LISINOPRIL HYDROCHLORTHIAZID [Concomitant]
     Indication: BLOOD PRESSURE
     Dosage: 30MG/25MG, QD
  12. OMEPRAZOLE [Concomitant]
     Indication: ABDOMINAL PAIN UPPER
     Dosage: 40 MG, QD
  13. FLONASE [Concomitant]
     Indication: HYPERSENSITIVITY

REACTIONS (2)
  - INCORRECT DRUG ADMINISTRATION DURATION [None]
  - DRUG INEFFECTIVE [None]
